FAERS Safety Report 4842438-4 (Version None)
Quarter: 2005Q4

REPORT INFORMATION
  Report Type: 
  Country: None (occurrence: None)
  Receive Date: 20051129
  Receipt Date: 20051111
  Transmission Date: 20060501
  Serious: Yes (Hospitalization)
  Sender: FDA-Public Use
  Company Number: US200511000102

PATIENT
  Sex: Female

DRUGS (2)
  1. HUMAN INSULIN (RDNA ORIGIN) (HUMAN INSULIN (RDNA ORIGIN) [Suspect]
     Indication: DIABETES MELLITUS
  2. INSULIN, ANIMAL (INSULIN ANIMAL) [Suspect]

REACTIONS (1)
  - TOE AMPUTATION [None]
